FAERS Safety Report 16245176 (Version 1)
Quarter: 2019Q2

REPORT INFORMATION
  Report Type: Spontaneous
  Country: US (occurrence: US)
  Receive Date: 20190426
  Receipt Date: 20190426
  Transmission Date: 20190711
  Serious: No
  Sender: FDA-Public Use
  Company Number: US-PFIZER INC-2019024270

PATIENT
  Age: 32 Year
  Sex: Male

DRUGS (1)
  1. XELJANZ XR [Suspect]
     Active Substance: TOFACITINIB CITRATE
     Indication: PSORIASIS
     Dosage: 11 MG, DAILY (TAKE 1 TABLET(S) BY MOUTH EVERY DAY AS DIRECTED)
     Route: 048
     Dates: start: 201809

REACTIONS (3)
  - Hypermobility syndrome [Unknown]
  - Product dose omission [Unknown]
  - Drug ineffective [Unknown]
